FAERS Safety Report 8492621-4 (Version None)
Quarter: 2012Q3

REPORT INFORMATION
  Report Type: 
  Country: None (occurrence: None)
  Receive Date: 20120706
  Receipt Date: 20120702
  Transmission Date: 20120928
  Serious: Yes (Hospitalization)
  Sender: FDA-Public Use
  Company Number: GB-PFIZER INC-2012157727

PATIENT
  Age: 76 Year
  Sex: Female

DRUGS (23)
  1. HYDROXYZINE [Concomitant]
     Dosage: 10 MG TO BE TAKEN AT NIGHT
     Route: 048
  2. PARACETAMOL [Concomitant]
     Dosage: 1 G, 4X/DAY
     Route: 048
  3. FLUTICASONE PROPIONATE/SALMETEROL [Concomitant]
     Dosage: 2 PUFFS TWICE DAILY
     Route: 050
  4. MEDROXYPROGESTERONE [Concomitant]
     Dosage: 50 MG IN THE MORNING
     Route: 048
  5. OXYCODONE HCL [Concomitant]
     Dosage: 5MG ONCE IN THE MORNING +10MG ONCE AT NIGHT.
     Route: 048
  6. CLOPIDOGREL [Concomitant]
     Dosage: 75 MG IN THE MORNING
     Route: 048
  7. ENOXAPARIN [Concomitant]
     Dosage: 40 MG, 1X/DAY, STARTED ON ADMISSION TO HOSPITAL
     Route: 048
  8. ATORVASTATIN [Suspect]
     Dosage: 80 MG, 1X/DAY, AT NIGHT
     Route: 048
  9. DULOXETIME HYDROCHLORIDE [Concomitant]
     Dosage: 60 MG IN THE MORNING
     Route: 048
  10. ASPIRIN [Concomitant]
     Dosage: 75 MG IN THE MORNING
     Route: 048
  11. ALENDRONATE SODIUM [Concomitant]
     Dosage: 70 MG, WEEKLY
     Route: 048
  12. TERBUTALINE [Concomitant]
     Dosage: 1 PUFF (250MICROGRAM) WHEN REQUIRED
     Route: 050
  13. ISOSORBIDE MONONITRATE [Concomitant]
     Dosage: 90 MG, 2X/DAY
     Route: 048
  14. NICORANDIL [Concomitant]
     Dosage: 10 MG, 2X/DAY
     Route: 048
  15. BISOPROLOL FUMARATE [Concomitant]
     Dosage: 2.5 MG IN THE MORNING
     Route: 048
  16. HYDROXYCHLOROQUINE SULFATE [Concomitant]
     Dosage: 200 MG, 1X/DAY
     Route: 048
  17. QUININE SULFATE [Concomitant]
     Dosage: 300 MG TO BE TAKEN AT NIGHT
     Route: 048
  18. CALCICHEW-D3 [Concomitant]
     Dosage: 1 DF, 1X/DAY
     Route: 048
  19. MACROGOL 3350 [Concomitant]
     Dosage: 1 SACHET  AT NIGHT
     Route: 048
  20. NITROGLYCERIN [Concomitant]
     Dosage: 1-2 SPRAYS WHEN REQUIRED
     Route: 060
  21. OMEPRAZOLE [Concomitant]
     Dosage: 40 MG IN THE MORNING
     Route: 048
  22. BUMETANIDE [Concomitant]
     Dosage: 3 MG IN THE MORNING
     Route: 048
  23. PHENOXYMETHYLPENICILLIN [Concomitant]
     Dosage: 250 MG, 2X/DAY
     Route: 048

REACTIONS (5)
  - C-REACTIVE PROTEIN INCREASED [None]
  - PANCREATITIS ACUTE [None]
  - WHITE BLOOD CELL COUNT INCREASED [None]
  - BLOOD POTASSIUM DECREASED [None]
  - AMYLASE INCREASED [None]
